FAERS Safety Report 5690618-0 (Version None)
Quarter: 2008Q2

REPORT INFORMATION
  Report Type: 
  Country: None (occurrence: None)
  Receive Date: 20080401
  Receipt Date: 20080326
  Transmission Date: 20081010
  Serious: Yes (Death, Other)
  Sender: FDA-Public Use
  Company Number: FR-BRISTOL-MYERS SQUIBB COMPANY-14131569

PATIENT
  Age: 71 Year
  Sex: Male

DRUGS (5)
  1. GLUCOPHAGE [Suspect]
     Indication: TYPE 2 DIABETES MELLITUS
     Route: 048
  2. KARDEGIC [Concomitant]
  3. TARKA [Concomitant]
  4. ATENOLOL [Concomitant]
  5. RILMENIDINE [Concomitant]

REACTIONS (7)
  - CARDIOGENIC SHOCK [None]
  - DEHYDRATION [None]
  - GASTROENTERITIS VIRAL [None]
  - LACTIC ACIDOSIS [None]
  - MULTI-ORGAN FAILURE [None]
  - RENAL FAILURE ACUTE [None]
  - SEPTIC SHOCK [None]
